FAERS Safety Report 15496307 (Version 2)
Quarter: 2018Q4

REPORT INFORMATION
  Report Type: Report from Study
  Country: JP (occurrence: JP)
  Receive Date: 20181012
  Receipt Date: 20181123
  Transmission Date: 20190205
  Serious: Yes (Other)
  Sender: FDA-Public Use
  Company Number: PHJP2018JP017411

PATIENT
  Age: 76 Year
  Sex: Male

DRUGS (3)
  1. ZYKADIA [Suspect]
     Active Substance: CERITINIB
     Indication: NON-SMALL CELL LUNG CANCER STAGE IIIB
     Dosage: 600 MG, QD
     Route: 048
     Dates: start: 20171116, end: 20171120
  2. ZYKADIA [Suspect]
     Active Substance: CERITINIB
     Dosage: 450 MG, QD
     Route: 048
     Dates: start: 20171121, end: 20171122
  3. ZYKADIA [Suspect]
     Active Substance: CERITINIB
     Dosage: 300 MG, QD
     Route: 048
     Dates: start: 20171208, end: 20171215

REACTIONS (3)
  - Decreased appetite [Recovered/Resolved]
  - Malaise [Recovered/Resolved]
  - Biliary tract disorder [Recovered/Resolved]

NARRATIVE: CASE EVENT DATE: 20171123
